FAERS Safety Report 5221743-6 (Version None)
Quarter: 2007Q1

REPORT INFORMATION
  Report Type: 
  Country: None (occurrence: None)
  Receive Date: 20070123
  Receipt Date: 20070115
  Transmission Date: 20070707
  Serious: Yes (Life-Threatening)
  Sender: FDA-Public Use
  Company Number: 863#3#2007-00001

PATIENT
  Age: 68 Year
  Sex: Male

DRUGS (3)
  1. IDROLAX (MACROGOL) [Suspect]
     Dosage: ORAL
     Route: 048
  2. GLICLAZIDE (GLICLAZIDE) [Concomitant]
  3. OMEPRAZOLE [Concomitant]

REACTIONS (1)
  - HYPOGLYCAEMIC COMA [None]
